FAERS Safety Report 4717274-X (Version None)
Quarter: 2005Q3

REPORT INFORMATION
  Report Type: 
  Country: None (occurrence: None)
  Receive Date: 20050715
  Receipt Date: 20050630
  Transmission Date: 20060218
  Serious: Yes (Hospitalization)
  Sender: FDA-Public Use
  Company Number: 2005-0008382

PATIENT
  Age: 43 Year
  Sex: Male
  Weight: 69 kg

DRUGS (7)
  1. ADEFOVIR DIPIVOXIL (ADEFOVIR DIPIVOXIL) [Suspect]
     Indication: HEPATITIS B
     Dosage: 5 MG, 1 IN 1 D, ORAL
     Route: 048
     Dates: start: 20041216, end: 20050525
  2. CYCLOSPORINE [Concomitant]
  3. URGASON (METHYLPREDNISOLONE) [Concomitant]
  4. LOCOL (FLUVASTATIN SODIUM) [Concomitant]
  5. CLONIDINE [Concomitant]
  6. ROCALTROL [Concomitant]
  7. XANAX [Concomitant]

REACTIONS (10)
  - AORTIC ATHEROSCLEROSIS [None]
  - BLOOD POTASSIUM DECREASED [None]
  - DRUG LEVEL DECREASED [None]
  - DYSPNOEA [None]
  - GLOMERULONEPHRITIS PROLIFERATIVE [None]
  - HYPERTENSIVE EMERGENCY [None]
  - KIDNEY TRANSPLANT REJECTION [None]
  - MITRAL VALVE DISEASE [None]
  - OEDEMA PERIPHERAL [None]
  - VENTRICULAR HYPERTROPHY [None]
